FAERS Safety Report 25077085 (Version 1)
Quarter: 2025Q1

REPORT INFORMATION
  Report Type: Spontaneous
  Country: US (occurrence: US)
  Receive Date: 20250314
  Receipt Date: 20250314
  Transmission Date: 20250408
  Serious: Yes (Other)
  Sender: Teyro Labs
  Company Number: US-TEYRO-2024-TY-000609

PATIENT
  Age: 52 Year
  Sex: Female

DRUGS (19)
  1. CARBOPLATIN [Suspect]
     Active Substance: CARBOPLATIN
     Indication: Lung adenocarcinoma stage IV
     Route: 065
     Dates: start: 2020, end: 2020
  2. CARBOPLATIN [Suspect]
     Active Substance: CARBOPLATIN
     Indication: Lung adenocarcinoma stage IV
  3. PEMETREXED [Suspect]
     Active Substance: PEMETREXED
     Indication: Lung adenocarcinoma stage IV
     Route: 065
     Dates: start: 2020, end: 2020
  4. PEMETREXED [Suspect]
     Active Substance: PEMETREXED
     Indication: Lung adenocarcinoma stage IV
  5. PEMBROLIZUMAB [Suspect]
     Active Substance: PEMBROLIZUMAB
     Indication: Lung adenocarcinoma stage IV
     Route: 065
     Dates: start: 2020, end: 2020
  6. PEMBROLIZUMAB [Suspect]
     Active Substance: PEMBROLIZUMAB
     Indication: Lung adenocarcinoma stage IV
  7. SILDENAFIL [Suspect]
     Active Substance: SILDENAFIL
     Indication: Pulmonary arterial hypertension
     Route: 065
     Dates: start: 2014
  8. SILDENAFIL [Suspect]
     Active Substance: SILDENAFIL
     Route: 065
  9. SILDENAFIL [Suspect]
     Active Substance: SILDENAFIL
     Route: 065
  10. EPOPROSTENOL [Concomitant]
     Active Substance: EPOPROSTENOL
     Indication: Pulmonary arterial hypertension
     Route: 042
     Dates: start: 2014
  11. EPOPROSTENOL [Concomitant]
     Active Substance: EPOPROSTENOL
     Route: 042
     Dates: start: 2022, end: 2022
  12. MACITENTAN [Concomitant]
     Active Substance: MACITENTAN
     Indication: Pulmonary arterial hypertension
     Route: 065
     Dates: start: 2014
  13. MACITENTAN [Concomitant]
     Active Substance: MACITENTAN
     Route: 065
  14. MACITENTAN [Concomitant]
     Active Substance: MACITENTAN
     Route: 065
  15. MACITENTAN [Concomitant]
     Active Substance: MACITENTAN
     Route: 065
  16. SELEXIPAG [Concomitant]
     Active Substance: SELEXIPAG
     Indication: Pulmonary arterial hypertension
     Route: 065
  17. SELEXIPAG [Concomitant]
     Active Substance: SELEXIPAG
     Route: 065
  18. SELEXIPAG [Concomitant]
     Active Substance: SELEXIPAG
     Route: 065
  19. RIOCIGUAT [Concomitant]
     Active Substance: RIOCIGUAT
     Indication: Pulmonary arterial hypertension
     Route: 065

REACTIONS (4)
  - Pancytopenia [Unknown]
  - Dyspnoea [Unknown]
  - Fatigue [Unknown]
  - Off label use [Unknown]
